FAERS Safety Report 16405787 (Version 1)
Quarter: 2019Q2

REPORT INFORMATION
  Report Type: Spontaneous
  Country: US (occurrence: US)
  Receive Date: 20190607
  Receipt Date: 20190607
  Transmission Date: 20190711
  Serious: No
  Sender: FDA-Public Use
  Company Number: US-AKRON, INC.-2067935

PATIENT
  Age: 61 Year
  Sex: Female

DRUGS (1)
  1. SULFAMETHOXAZOLE + TRIMETHOPRIM ORAL SUSPENSION USP [Suspect]
     Active Substance: SULFAMETHOXAZOLE\TRIMETHOPRIM
     Route: 065

REACTIONS (1)
  - Hypersensitivity [Unknown]
